FAERS Safety Report 8565528-1 (Version None)
Quarter: 2012Q3

REPORT INFORMATION
  Report Type: 
  Country: None (occurrence: None)
  Receive Date: 20120803
  Receipt Date: 20120725
  Transmission Date: 20120928
  Serious: Yes (Hospitalization, Disabling, Other)
  Sender: FDA-Public Use
  Company Number: US-009507513-1207USA004080

PATIENT

DRUGS (5)
  1. FOSAMAX [Suspect]
     Indication: OSTEOPENIA
     Dosage: 5 MG, QD
     Route: 048
     Dates: end: 20010626
  2. FOSAMAX [Suspect]
     Indication: OSTEOPOROSIS
     Dosage: 70 MG, QW
     Route: 048
     Dates: start: 20010627, end: 20071024
  3. FOSAMAX [Suspect]
  4. FOSAMAX [Suspect]
     Dosage: 70 MG, QW
     Route: 048
     Dates: start: 20110720, end: 20111127
  5. ALENDRONATE SODIUM [Suspect]
     Dosage: 70 MG, QW
     Route: 048
     Dates: start: 20080307, end: 20101214

REACTIONS (31)
  - HYPERTENSION [None]
  - TENDON DISORDER [None]
  - AUTOIMMUNE THYROIDITIS [None]
  - SYNCOPE [None]
  - ARTHROPATHY [None]
  - HAEMATURIA [None]
  - ANXIETY [None]
  - HYPERLIPIDAEMIA [None]
  - MELANOSIS COLI [None]
  - HYPOTHYROIDISM [None]
  - MAJOR DEPRESSION [None]
  - LOW TURNOVER OSTEOPATHY [None]
  - OSTEOPOROSIS [None]
  - MULTIPLE FRACTURES [None]
  - ARTHRITIS [None]
  - SUPRAVENTRICULAR TACHYCARDIA [None]
  - CONSTIPATION [None]
  - UTERINE LEIOMYOMA [None]
  - FEMUR FRACTURE [None]
  - HYPERCHOLESTEROLAEMIA [None]
  - ADVERSE DRUG REACTION [None]
  - SKIN CANCER [None]
  - ACROCHORDON [None]
  - GASTROOESOPHAGEAL REFLUX DISEASE [None]
  - APPENDIX DISORDER [None]
  - OSTEOARTHRITIS [None]
  - DEPRESSION [None]
  - GINGIVAL DISORDER [None]
  - LABYRINTHITIS [None]
  - SCIATICA [None]
  - RADICULOPATHY [None]
